FAERS Safety Report 7393960 (Version 4)
Quarter: 2018Q3

REPORT INFORMATION
  Report Type: Spontaneous
  Country: FR (occurrence: FR)
  Receive Date: 20100520
  Receipt Date: 20180912
  Transmission Date: 20181010
  Serious: Yes (Life-Threatening)
  Sender: FDA-Public Use
  Company Number: FR-PFIZER INC-2010057610

PATIENT
  Age: 89 Year
  Sex: Female

DRUGS (14)
  1. IMOVANE [Concomitant]
     Active Substance: ZOPICLONE
  2. GAVISCON [Concomitant]
     Active Substance: ALUMINUM HYDROXIDE\MAGNESIUM CARBONATE
  3. LYRICA [Suspect]
     Active Substance: PREGABALIN
     Indication: NEURALGIA
     Dosage: 75 MG, 2X/DAY
     Route: 048
     Dates: start: 20100423, end: 20100426
  4. LASILIX [Concomitant]
     Active Substance: FUROSEMIDE
     Dosage: 20 MG, UNK
  5. PREVISCAN [Concomitant]
     Dosage: UNK
     Dates: end: 20100427
  6. OXYCONTIN [Concomitant]
     Active Substance: OXYCODONE HYDROCHLORIDE
  7. XYZAL [Suspect]
     Active Substance: LEVOCETIRIZINE DIHYDROCHLORIDE
     Dosage: 5 MG, 1X/DAY
     Route: 048
     Dates: start: 20100424, end: 20100426
  8. INEXIUM [Concomitant]
     Active Substance: ESOMEPRAZOLE
     Dosage: 40 MG, UNK
  9. OXYNORM [Concomitant]
     Active Substance: OXYCODONE HYDROCHLORIDE
  10. ALDACTONE [Concomitant]
     Active Substance: SPIRONOLACTONE
  11. TRIATEC [Concomitant]
     Dosage: 2.5 MG, UNK
  12. DIGOXIN. [Concomitant]
     Active Substance: DIGOXIN
  13. FUCIDINE [Suspect]
     Active Substance: FUSIDIC ACID
     Indication: INFECTED SKIN ULCER
     Dosage: UNK
     Route: 048
     Dates: start: 20100413, end: 20100429
  14. CARDENSIEL [Concomitant]
     Active Substance: BISOPROLOL FUMARATE
     Dosage: 2.5 MG, UNK

REACTIONS (2)
  - Agranulocytosis [Recovered/Resolved]
  - Thrombocytopenia [Recovering/Resolving]

NARRATIVE: CASE EVENT DATE: 20100427
